FAERS Safety Report 20131736 (Version 1)
Quarter: 2021Q4

REPORT INFORMATION
  Report Type: Spontaneous
  Country: GB (occurrence: GB)
  Receive Date: 20211130
  Receipt Date: 20211130
  Transmission Date: 20220304
  Serious: Yes (Other)
  Sender: FDA-Public Use
  Company Number: None

PATIENT
  Age: 81 Year
  Sex: Male

DRUGS (9)
  1. NIZATIDINE [Suspect]
     Active Substance: NIZATIDINE
     Indication: Product used for unknown indication
     Dosage: 150 MILLIGRAM
     Dates: start: 20210915
  2. GAVISCON                           /00237601/ [Concomitant]
     Dosage: UNK
  3. NITROMIN                           /00003201/ [Concomitant]
     Dosage: UNK
  4. FINASTERIDE [Concomitant]
     Active Substance: FINASTERIDE
     Dosage: UNK
  5. ACETAMINOPHEN [Concomitant]
     Active Substance: ACETAMINOPHEN
     Dosage: UNK
  6. TAMSULOSIN [Concomitant]
     Active Substance: TAMSULOSIN
     Dosage: UNK
  7. ASPIRIN                            /00002701/ [Concomitant]
     Dosage: UNK
  8. ALLOPURINOL [Concomitant]
     Active Substance: ALLOPURINOL
     Dosage: UNK
  9. HYPROMELLOSES [Concomitant]
     Active Substance: HYPROMELLOSES
     Dosage: UNK

REACTIONS (2)
  - Hyponatraemia [Unknown]
  - Parkinson^s disease [Unknown]

NARRATIVE: CASE EVENT DATE: 20211001
